FAERS Safety Report 8844427 (Version 1)
Quarter: 2012Q4

REPORT INFORMATION
  Report Type: Spontaneous
  Country: KR (occurrence: None)
  Receive Date: 20121012
  Receipt Date: 20121012
  Transmission Date: 20130627
  Serious: Yes (Hospitalization)
  Sender: FDA-Public Use
  Company Number: KR-2012-2650

PATIENT
  Age: 70 Year
  Sex: Female
  Weight: 64 kg

DRUGS (16)
  1. NAVELBINE [Suspect]
     Indication: BREAST CANCER METASTATIC
     Dosage: 25 MG/M2, QWK, INTRAVENOUS
     Route: 042
     Dates: start: 20120503
  2. VALPROATE MAGNESIUM [Concomitant]
  3. CALCIUM CARBONATE W/COLECIFEROL [Concomitant]
  4. CENTRUM [Concomitant]
  5. RANITIDINE HYDROCHLORIDE [Concomitant]
  6. MAGNESIUM OXIDE [Concomitant]
  7. MYPRODOL [Concomitant]
  8. FLUOROMETHOLONE ACETATE [Concomitant]
  9. PAMIDRONATE DISODIUM [Concomitant]
  10. PROCTOSEDYL/00095901/ [Concomitant]
  11. ADVANTAN [Concomitant]
  12. DEXAMETHASONE [Concomitant]
  13. TANTUM/00052302/ [Concomitant]
  14. AMPICILLIN [Concomitant]
  15. SOLONDO [Concomitant]
  16. LODINE [Concomitant]

REACTIONS (3)
  - Pneumonia [None]
  - Mucosal inflammation [None]
  - Fatigue [None]
